FAERS Safety Report 5870733-9 (Version None)
Quarter: 2008Q3

REPORT INFORMATION
  Report Type: 
  Country: None (occurrence: None)
  Receive Date: 20080904
  Receipt Date: 20080903
  Transmission Date: 20090109
  Serious: Yes (Other)
  Sender: FDA-Public Use
  Company Number: US-BRISTOL-MYERS SQUIBB COMPANY-14322929

PATIENT
  Age: 20 Year
  Sex: Female

DRUGS (7)
  1. ABILIFY [Suspect]
     Indication: DEPRESSION
     Dosage: STARTED AS 5MG AND INCREASED TO 15MG.
  2. ABILIFY [Suspect]
     Indication: BIPOLAR DISORDER
     Dosage: STARTED AS 5MG AND INCREASED TO 15MG.
  3. ACCUTANE [Suspect]
     Dates: start: 20070501, end: 20071001
  4. LAMOTRIGINE [Suspect]
     Indication: BIPOLAR DISORDER
     Dosage: STARTED AS 25 MG AND INCREASED UPTO 150MG
  5. LAMOTRIGINE [Suspect]
     Indication: DEPRESSION
     Dosage: STARTED AS 25 MG AND INCREASED UPTO 150MG
  6. CITALOPRAM HYDROBROMIDE [Suspect]
     Indication: DEPRESSION
     Dosage: 20MG INTIALLY STARTED AND THEN DOSE WAS DOUBLED
  7. CITALOPRAM HYDROBROMIDE [Suspect]
     Indication: BIPOLAR DISORDER
     Dosage: 20MG INTIALLY STARTED AND THEN DOSE WAS DOUBLED

REACTIONS (4)
  - ACNE [None]
  - PHOTOSENSITIVITY REACTION [None]
  - PYREXIA [None]
  - SOMNOLENCE [None]
